FAERS Safety Report 14813078 (Version 1)
Quarter: 2018Q2

REPORT INFORMATION
  Report Type: Spontaneous
  Country: FR (occurrence: FR)
  Receive Date: 20180426
  Receipt Date: 20180426
  Transmission Date: 20180711
  Serious: Yes (Other)
  Sender: FDA-Public Use
  Company Number: FR-MERCK KGAA-2046550

PATIENT
  Age: 56 Year
  Sex: Female

DRUGS (1)
  1. NOVOTHYROX [Suspect]
     Active Substance: LEVOTHYROXINE SODIUM
     Indication: PRODUCT USED FOR UNKNOWN INDICATION
     Dates: start: 201705

REACTIONS (21)
  - Suicidal ideation [None]
  - Social avoidant behaviour [None]
  - Asthenia [None]
  - Alopecia [None]
  - Fatigue [None]
  - Muscular weakness [None]
  - Tachycardia [None]
  - Irritability [None]
  - Visual impairment [None]
  - Chest pain [None]
  - Depression [None]
  - Weight increased [None]
  - Tri-iodothyronine free decreased [None]
  - Anxiety [None]
  - Headache [None]
  - Insomnia [Not Recovered/Not Resolved]
  - Loss of personal independence in daily activities [None]
  - Abdominal pain [None]
  - Arthralgia [None]
  - Back pain [None]
  - Urticaria [None]

NARRATIVE: CASE EVENT DATE: 2017
